FAERS Safety Report 7054558-7 (Version None)
Quarter: 2010Q4

REPORT INFORMATION
  Report Type: 
  Country: None (occurrence: None)
  Receive Date: 20101020
  Receipt Date: 20101007
  Transmission Date: 20110411
  Serious: Yes (Other)
  Sender: FDA-Public Use
  Company Number: GB-ELI_LILLY_AND_COMPANY-GB201010001950

PATIENT
  Sex: Male

DRUGS (1)
  1. ZYPADHERA [Suspect]
     Dosage: 300 MG, EVERY 2 WEEKS
     Route: 030

REACTIONS (2)
  - MENTAL IMPAIRMENT [None]
  - PSYCHOTIC DISORDER [None]
